FAERS Safety Report 8708308 (Version 2)
Quarter: 2012Q4

REPORT INFORMATION
  Report Type: 
  Country: US (occurrence: US)
  Receive Date: 20120806
  Receipt Date: 20120830
  Transmission Date: 20130627
  Serious: Yes (Death, Hospitalization)
  Sender: FDA-Public Use
  Company Number: PHEH2012US015224

PATIENT
  Age: 51 None
  Sex: Female
  Weight: 68.03 kg

DRUGS (3)
  1. AFINITOR [Suspect]
     Indication: BREAST CANCER METASTATIC
     Dosage: 10 mg, daily
     Route: 048
     Dates: start: 20120516
  2. EXEMESTANE [Concomitant]
     Indication: BREAST CANCER METASTATIC
     Dosage: 25 mg, daily
     Route: 048
     Dates: start: 20120518
  3. PAMIDRONIC ACID [Concomitant]
     Indication: BREAST CANCER METASTATIC
     Dosage: 90 mg, Q 4 weeks
     Route: 042
     Dates: start: 20120615, end: 20120615

REACTIONS (7)
  - Multi-organ failure [Fatal]
  - Hepatic failure [Unknown]
  - Renal failure [Unknown]
  - Anaemia [Unknown]
  - Cough [Unknown]
  - Pyrexia [Unknown]
  - Blood glucose increased [Unknown]
